FAERS Safety Report 21492720 (Version 4)
Quarter: 2022Q4

REPORT INFORMATION
  Report Type: Report from Study
  Country: IT (occurrence: IT)
  Receive Date: 20221021
  Receipt Date: 20221114
  Transmission Date: 20230113
  Serious: Yes (Death, Hospitalization)
  Sender: FDA-Public Use
  Company Number: IT-DSJP-DSU-2022-137911

PATIENT
  Sex: Female
  Weight: 59 kg

DRUGS (1)
  1. ENHERTU [Suspect]
     Active Substance: FAM-TRASTUZUMAB DERUXTECAN-NXKI
     Indication: HER2 positive breast cancer
     Dosage: 318 UNK, ONCE EVERY 3 WK
     Route: 042
     Dates: start: 20210720, end: 20220825

REACTIONS (2)
  - Respiratory failure [Fatal]
  - COVID-19 [Fatal]
